FAERS Safety Report 5005069-1 (Version None)
Quarter: 2006Q2

REPORT INFORMATION
  Report Type: 
  Country: None (occurrence: None)
  Receive Date: 20060516
  Receipt Date: 20060516
  Transmission Date: 20061013
  Serious: Yes (Hospitalization)
  Sender: FDA-Public Use
  Company Number: None

PATIENT
  Sex: Female
  Weight: 72.5755 kg

DRUGS (3)
  1. DUONEB [Suspect]
     Indication: BRONCHOSPASM
     Dosage: SEE IMAGE
     Dates: start: 20060427
  2. PULMICORT [Suspect]
     Indication: PNEUMONIA
     Dosage: 0.25MG/2ML
     Dates: start: 20060427
  3. DEXAMETHASONE TAB [Concomitant]

REACTIONS (3)
  - MOVEMENT DISORDER [None]
  - MUSCLE SPASMS [None]
  - MUSCLE TWITCHING [None]
